FAERS Safety Report 5001832-1 (Version None)
Quarter: 2006Q2

REPORT INFORMATION
  Report Type: 
  Country: None (occurrence: None)
  Receive Date: 20060515
  Receipt Date: 20060508
  Transmission Date: 20061013
  Serious: Yes (Other)
  Sender: FDA-Public Use
  Company Number: US-GLAXOSMITHKLINE-A0605453A

PATIENT
  Sex: Female

DRUGS (2)
  1. WELLBUTRIN [Suspect]
     Indication: DRUG USE FOR UNKNOWN INDICATION
     Route: 048
  2. BENADRYL [Suspect]
     Route: 065

REACTIONS (5)
  - CONVULSION [None]
  - DRUG INTERACTION [None]
  - MOTOR DYSFUNCTION [None]
  - STARING [None]
  - SWELLING FACE [None]
